FAERS Safety Report 8979172 (Version 1)
Quarter: 2012Q4

REPORT INFORMATION
  Report Type: 
  Country: CA (occurrence: CA)
  Receive Date: 20121221
  Receipt Date: 20121221
  Transmission Date: 20130627
  Serious: Yes (Death)
  Sender: FDA-Public Use
  Company Number: CA-GLAXOSMITHKLINE-A1006244A

PATIENT
  Age: 47 Year
  Sex: Female

DRUGS (1)
  1. WELLBUTRIN [Suspect]
     Indication: INSOMNIA
     Dosage: 1TAB Per day
     Route: 065
     Dates: start: 2012

REACTIONS (1)
  - Completed suicide [Fatal]
